FAERS Safety Report 25009983 (Version 2)
Quarter: 2025Q1

REPORT INFORMATION
  Report Type: Spontaneous
  Country: IT (occurrence: IT)
  Receive Date: 20250225
  Receipt Date: 20250325
  Transmission Date: 20250409
  Serious: Yes (Hospitalization, Other)
  Sender: ALEXION PHARMACEUTICALS
  Company Number: IT-SA-2025SA049604

PATIENT
  Age: 3 Month

DRUGS (1)
  1. BEYFORTUS [Suspect]
     Active Substance: NIRSEVIMAB-ALIP
     Indication: Antiviral prophylaxis
     Dosage: 50 MG, 1X
     Route: 065

REACTIONS (3)
  - Respiratory syncytial virus bronchiolitis [Unknown]
  - Dyspnoea [Unknown]
  - Drug ineffective [Unknown]
